FAERS Safety Report 11637878 (Version 2)
Quarter: 2015Q4

REPORT INFORMATION
  Report Type: Report from Study
  Country: JP (occurrence: JP)
  Receive Date: 20151016
  Receipt Date: 20151104
  Transmission Date: 20160304
  Serious: Yes (Death)
  Sender: FDA-Public Use
  Company Number: JP-DEP_12841_2015

PATIENT
  Sex: Female
  Weight: 51 kg

DRUGS (30)
  1. TAPENTA (TAPENTADOL) [Suspect]
     Active Substance: TAPENTADOL HYDROCHLORIDE
     Indication: CANCER PAIN
     Route: 048
     Dates: start: 20150820, end: 20150826
  2. TAPENTA (TAPENTADOL) [Suspect]
     Active Substance: TAPENTADOL HYDROCHLORIDE
     Route: 048
     Dates: start: 20150807, end: 20150813
  3. TAPENTA (TAPENTADOL) [Suspect]
     Active Substance: TAPENTADOL HYDROCHLORIDE
     Route: 048
     Dates: start: 20150728, end: 20150806
  4. ZYPREXA [Concomitant]
     Active Substance: OLANZAPINE
     Indication: GASTRIC CANCER
     Dosage: DF
     Dates: start: 20150731, end: 20150819
  5. CALONAL (PARACETAMOL) [Concomitant]
     Indication: CANCER PAIN
     Dosage: DF
     Dates: start: 20150820, end: 20150827
  6. LOXOPROFEN (LOXOPROFEN) [Concomitant]
     Active Substance: LOXOPROFEN
     Indication: CANCER PAIN
     Dosage: DF
     Dates: start: 20150723, end: 20150827
  7. VITAMEDIN /00274301/ [Concomitant]
     Indication: HYPOVITAMINOSIS
     Dosage: DF
     Dates: start: 20150815, end: 20150830
  8. TRAVELMIN /00517301/ [Concomitant]
     Indication: PROPHYLAXIS
     Dosage: DF
     Dates: start: 20150728, end: 20150819
  9. REBAMIPIDE (REBAMIPIDE) [Concomitant]
     Indication: PROPHYLAXIS
     Dosage: DF
     Dates: start: 20150725, end: 20150819
  10. RINDERON /00008501/ (BETAMETHASONE) [Concomitant]
     Indication: CACHEXIA
     Dosage: DF
     Dates: start: 20150815, end: 20150830
  11. OPSO (MORPHINE HYDROCHLORIDE) [Concomitant]
     Indication: CANCER PAIN
     Dosage: DF
     Dates: start: 20150730, end: 20150730
  12. CALONAL (PARACETAMOL) [Concomitant]
     Indication: CANCER PAIN
     Dosage: DF
     Dates: start: 20150803, end: 20150819
  13. LYRICA [Concomitant]
     Active Substance: PREGABALIN
     Indication: CANCER PAIN
     Dosage: DF
     Dates: start: 20150822, end: 20150827
  14. CALCICOL (CALCIUM GLUCONATE) [Concomitant]
     Indication: OSTEOPOROSIS
     Dosage: DF
     Dates: start: 20150815, end: 20150830
  15. OPSO (MORPHINE HYDROCHLORIDE) [Concomitant]
     Indication: CANCER PAIN
     Dosage: DF
     Dates: start: 20150729, end: 20150729
  16. OPSO (MORPHINE HYDROCHLORIDE) [Concomitant]
     Indication: CANCER PAIN
     Dosage: DF
     Dates: start: 20150806, end: 20150806
  17. ELDECALCITOL (ELDECALCITOL) [Concomitant]
     Indication: PROPHYLAXIS
     Dosage: DF
     Dates: start: 20150727, end: 20150819
  18. RINDERON /00008501/ (BETAMETHASONE) [Concomitant]
     Indication: CACHEXIA
     Dosage: DF
     Dates: start: 20150815, end: 20150830
  19. CALONAL (PARACETAMOL) [Concomitant]
     Indication: CANCER PAIN
     Dosage: DF
     Dates: start: 20150723, end: 20150730
  20. DENOTAS [Concomitant]
     Active Substance: CALCIUM CARBONATE\CHOLECALCIFEROL\MAGNESIUM CARBONATE
     Indication: PROPHYLAXIS
     Dosage: DF
     Dates: start: 20150727, end: 20150819
  21. OPSO (MORPHINE HYDROCHLORIDE) [Concomitant]
     Indication: CANCER PAIN
     Dosage: DF
     Dates: start: 20150806, end: 20150807
  22. VITAMEDIN /00274301/ [Concomitant]
     Indication: HYPOVITAMINOSIS
     Dosage: DF
     Dates: start: 20150815, end: 20150830
  23. LYRICA [Concomitant]
     Active Substance: PREGABALIN
     Indication: CANCER PAIN
     Dosage: DF
     Dates: start: 20150815, end: 20150819
  24. OPSO (MORPHINE HYDROCHLORIDE) [Concomitant]
     Indication: CANCER PAIN
     Dosage: DF
     Dates: start: 20150801, end: 20150801
  25. LYRICA [Concomitant]
     Active Substance: PREGABALIN
     Indication: CANCER PAIN
     Dosage: DF
     Dates: start: 20150820, end: 20150821
  26. PRIMPERAN [Concomitant]
     Active Substance: METOCLOPRAMIDE HYDROCHLORIDE
     Indication: PROPHYLAXIS
     Dosage: DF
     Dates: start: 20150815, end: 20150830
  27. OPSO (MORPHINE HYDROCHLORIDE) [Concomitant]
     Indication: CANCER PAIN
     Dosage: DF
     Dates: start: 20150810, end: 20150810
  28. MAGMITT (MAGNESIUM OXIDE) [Concomitant]
     Active Substance: MAGNESIUM OXIDE
     Indication: PROPHYLAXIS
     Dosage: DF
     Dates: start: 20150728, end: 20150819
  29. TAPENTA (TAPENTADOL) [Suspect]
     Active Substance: TAPENTADOL HYDROCHLORIDE
     Route: 048
     Dates: start: 20150814, end: 20150819
  30. OPSO (MORPHINE HYDROCHLORIDE) [Concomitant]
     Indication: CANCER PAIN
     Dosage: DF
     Dates: start: 20150802, end: 20150802

REACTIONS (1)
  - Gastric cancer [Fatal]
